FAERS Safety Report 7280264-X (Version None)
Quarter: 2011Q1

REPORT INFORMATION
  Report Type: 
  Country: None (occurrence: None)
  Receive Date: 20110208
  Receipt Date: 20101117
  Transmission Date: 20110831
  Serious: Yes (Hospitalization, Disabling, Other)
  Sender: FDA-Public Use
  Company Number: BR-BAYER-201014858LA

PATIENT
  Sex: Female

DRUGS (7)
  1. AMITRIPTYLINE [Concomitant]
     Indication: DEPRESSION
     Route: 048
     Dates: start: 19990101
  2. LIORESAL [Concomitant]
     Route: 048
     Dates: start: 20080101
  3. BETAFERON [Suspect]
     Indication: SECONDARY PROGRESSIVE MULTIPLE SCLEROSIS
     Dosage: BETAJECT
     Route: 058
  4. BETAFERON [Suspect]
     Dosage: BETAJECT
     Route: 058
     Dates: start: 19991101
  5. NITROFURANTOIN [Concomitant]
     Route: 048
     Dates: start: 20020101
  6. YAZ [Suspect]
     Dosage: AS USED DOSE: UNK
     Route: 048
     Dates: start: 20081001
  7. OMEPRAZOLE [Concomitant]
     Route: 048
     Dates: start: 20100801

REACTIONS (7)
  - MULTIPLE SCLEROSIS RELAPSE [None]
  - FRACTURED COCCYX [None]
  - BLINDNESS [None]
  - URINARY TRACT INFECTION [None]
  - HEADACHE [None]
  - DEPRESSION [None]
  - ANAEMIA [None]
